FAERS Safety Report 5945140-0 (Version None)
Quarter: 2008Q4

REPORT INFORMATION
  Report Type: 
  Country: None (occurrence: None)
  Receive Date: 20081107
  Receipt Date: 20081031
  Transmission Date: 20090506
  Serious: Yes (Death, Hospitalization)
  Sender: FDA-Public Use
  Company Number: A0755212A

PATIENT
  Age: 58 Year
  Sex: Male

DRUGS (10)
  1. AVANDIA [Suspect]
     Route: 048
     Dates: start: 20010101, end: 20050913
  2. GLUCOPHAGE [Concomitant]
     Dates: start: 19941201, end: 20040501
  3. METFORMIN HCL [Concomitant]
     Dates: start: 19941201, end: 20040501
  4. DIABETA [Concomitant]
     Dates: start: 19940101
  5. HUMALOG [Concomitant]
  6. LANTUS [Concomitant]
  7. COREG [Concomitant]
     Dates: start: 20011101
  8. QUININE [Concomitant]
  9. ASPIRIN [Concomitant]
  10. LORATADINE [Concomitant]

REACTIONS (4)
  - CARDIAC FAILURE CONGESTIVE [None]
  - DYSPNOEA [None]
  - MYOCARDIAL INFARCTION [None]
  - VISION BLURRED [None]
